FAERS Safety Report 4375631-8 (Version None)
Quarter: 2004Q2

REPORT INFORMATION
  Report Type: 
  Country: None (occurrence: None)
  Receive Date: 20040607
  Receipt Date: 20040525
  Transmission Date: 20050107
  Serious: Yes (Death)
  Sender: FDA-Public Use
  Company Number: 1713747/2004/000010

PATIENT
  Sex: 0
  Weight: 65.6 kg

DRUGS (1)
  1. DELFLEX W/ DEXTROSE 2.5% LOW MAGNESIUM LOW CALCIUM [Suspect]
     Indication: RENAL FAILURE CHRONIC
     Dosage: 13.5 L, INTRAPERITONEAL
     Route: 033
     Dates: start: 20040516

REACTIONS (5)
  - CARDIAC ARREST [None]
  - DRUG TOLERANCE DECREASED [None]
  - PERITONITIS [None]
  - PHARMACEUTICAL PRODUCT COMPLAINT [None]
  - PSEUDOMONAS INFECTION [None]
